FAERS Safety Report 16808559 (Version 3)
Quarter: 2019Q4

REPORT INFORMATION
  Report Type: Spontaneous
  Country: CA (occurrence: CA)
  Receive Date: 20190916
  Receipt Date: 20191018
  Transmission Date: 20200122
  Serious: Yes (Other)
  Sender: FDA-Public Use
  Company Number: CA-ASTRAZENECA-2019SF29770

PATIENT
  Age: 70 Year
  Sex: Male

DRUGS (5)
  1. LEVODOPA [Concomitant]
     Active Substance: LEVODOPA
     Dosage: INCREASED
  2. SEROQUEL [Suspect]
     Active Substance: QUETIAPINE FUMARATE
     Indication: DEPRESSION
     Dosage: 12.5 MG AS NEEDED
     Route: 048
  3. SEROQUEL [Suspect]
     Active Substance: QUETIAPINE FUMARATE
     Indication: DEPRESSION
     Dosage: ONE DOSE
     Route: 048
     Dates: start: 201406, end: 201406
  4. SEROQUEL [Suspect]
     Active Substance: QUETIAPINE FUMARATE
     Indication: DEPRESSION
     Dosage: GENERIC IR 50 MG TID AND 100 MG BEFORE BED
     Route: 065
     Dates: start: 201905
  5. ATAVAN [Concomitant]
     Dosage: PM ATAVAN

REACTIONS (12)
  - Catatonia [Unknown]
  - Anxiety [Unknown]
  - Speech disorder [Unknown]
  - Urinary retention [Unknown]
  - Musculoskeletal stiffness [Unknown]
  - Dysstasia [Unknown]
  - Hyperhidrosis [Unknown]
  - Dyspnoea [Unknown]
  - Syncope [Unknown]
  - Heart rate irregular [Unknown]
  - Cold sweat [Unknown]
  - Tardive dyskinesia [Unknown]

NARRATIVE: CASE EVENT DATE: 2019
